FAERS Safety Report 9962489 (Version 1)
Quarter: 2014Q1

REPORT INFORMATION
  Report Type: Report from Study
  Country: US (occurrence: US)
  Receive Date: 20140305
  Receipt Date: 20140305
  Transmission Date: 20141002
  Serious: Yes (Other)
  Sender: FDA-Public Use
  Company Number: US-ABBVIE-13P-163-1116841-00

PATIENT
  Sex: Female

DRUGS (12)
  1. HUMIRA [Suspect]
     Indication: RHEUMATOID ARTHRITIS
     Dates: start: 200212, end: 2003
  2. ENBREL [Suspect]
     Indication: PRODUCT USED FOR UNKNOWN INDICATION
  3. REMICADE [Suspect]
     Indication: PRODUCT USED FOR UNKNOWN INDICATION
  4. ORENCIA [Suspect]
     Indication: PRODUCT USED FOR UNKNOWN INDICATION
  5. ASA [Concomitant]
     Indication: CARDIOVASCULAR DISORDER
  6. METFORMIN [Concomitant]
     Indication: DIABETES MELLITUS
  7. FOLIC ACID [Concomitant]
     Indication: PRODUCT USED FOR UNKNOWN INDICATION
  8. B12 [Concomitant]
     Indication: PRODUCT USED FOR UNKNOWN INDICATION
  9. URSODIAL [Concomitant]
     Indication: ULCER
     Dosage: 1 IN THE MORNING, 3 AT BEDTIME
  10. DEXILANT [Concomitant]
     Indication: ULCER
  11. IRON PILL [Concomitant]
     Indication: PRODUCT USED FOR UNKNOWN INDICATION
  12. BENICAR [Concomitant]
     Indication: HYPERTENSION

REACTIONS (1)
  - Hip arthroplasty [Recovered/Resolved]
